FAERS Safety Report 10154647 (Version 1)
Quarter: 2014Q2

REPORT INFORMATION
  Report Type: Spontaneous
  Country: GB (occurrence: GB)
  Receive Date: 20140506
  Receipt Date: 20140506
  Transmission Date: 20141212
  Serious: Yes (Death, Life-Threatening)
  Sender: FDA-Public Use
  Company Number: GB-ROXANE LABORATORIES, INC.-2014-RO-00694RO

PATIENT
  Age: 36 Year
  Sex: Female

DRUGS (3)
  1. METHOTREXATE [Suspect]
     Indication: CHONDROSARCOMA
     Route: 065
  2. CISPLATIN [Suspect]
     Indication: CHONDROSARCOMA
     Route: 065
  3. DOXORUBICIN [Suspect]
     Indication: CHONDROSARCOMA
     Route: 065

REACTIONS (3)
  - Death [Fatal]
  - Toxic encephalopathy [Unknown]
  - Chondrosarcoma metastatic [Unknown]
